FAERS Safety Report 20305099 (Version 2)
Quarter: 2022Q1

REPORT INFORMATION
  Report Type: Spontaneous
  Country: FR (occurrence: FR)
  Receive Date: 20220106
  Receipt Date: 20220120
  Transmission Date: 20220423
  Serious: Yes (Death)
  Sender: FDA-Public Use
  Company Number: None

PATIENT
  Age: 73 Year
  Sex: Female

DRUGS (9)
  1. BROMAZEPAM [Suspect]
     Active Substance: BROMAZEPAM
     Indication: Product used for unknown indication
     Dosage: UNK (NP)
     Route: 048
     Dates: start: 20200716, end: 20200716
  2. BROMAZEPAM [Suspect]
     Active Substance: BROMAZEPAM
     Dosage: UNK (NP)
     Route: 048
     Dates: start: 20200716
  3. METFORMIN [Suspect]
     Active Substance: METFORMIN HYDROCHLORIDE
     Indication: Product used for unknown indication
     Dosage: UNK (NP)
     Route: 048
     Dates: start: 20200716, end: 20200716
  4. METFORMIN [Suspect]
     Active Substance: METFORMIN HYDROCHLORIDE
     Dosage: UNK (NP)
     Route: 048
     Dates: start: 20200716
  5. ZOPICLONE [Suspect]
     Active Substance: ZOPICLONE
     Indication: Product used for unknown indication
     Dosage: UNK (NP)
     Route: 048
     Dates: start: 20200716, end: 20200716
  6. ZOPICLONE [Suspect]
     Active Substance: ZOPICLONE
     Dosage: UNK (NP)
     Route: 048
     Dates: start: 20200716
  7. ALCOHOL [Suspect]
     Active Substance: ALCOHOL
     Indication: Product used for unknown indication
     Dosage: UNK
     Route: 065
  8. MILNACIPRAN [Suspect]
     Active Substance: MILNACIPRAN
     Indication: Product used for unknown indication
     Dosage: UNK
     Route: 065
  9. LIRAGLUTIDE [Suspect]
     Active Substance: LIRAGLUTIDE
     Indication: Product used for unknown indication
     Dosage: UNK
     Route: 065

REACTIONS (2)
  - Road traffic accident [Fatal]
  - Intentional overdose [Fatal]

NARRATIVE: CASE EVENT DATE: 20200716
